FAERS Safety Report 4659104-0 (Version None)
Quarter: 2005Q2

REPORT INFORMATION
  Report Type: 
  Country: None (occurrence: None)
  Receive Date: 20050509
  Receipt Date: 20050425
  Transmission Date: 20051028
  Serious: Yes (Hospitalization)
  Sender: FDA-Public Use
  Company Number: 200510040BYL

PATIENT
  Age: 75 Year
  Sex: Male
  Weight: 40 kg

DRUGS (7)
  1. ASPIRIN [Suspect]
     Indication: ANGINA PECTORIS
     Dosage: 100 MG, QD, ORAL
     Route: 048
     Dates: start: 20041022
  2. CARVEDILOL [Suspect]
     Indication: CARDIAC FAILURE
     Dosage: 2.5 MG, QD, ORAL
     Route: 048
     Dates: start: 20041022, end: 20050128
  3. DIOVAN [Suspect]
     Indication: CARDIAC FAILURE
     Dosage: 80 MG, QD, ORAL
     Route: 048
     Dates: start: 20041210, end: 20050122
  4. LASIX [Suspect]
     Indication: CARDIAC FAILURE
     Dosage: 40 MG, QD, ORAL
     Route: 048
     Dates: start: 20041022, end: 20050131
  5. WARFARIN [Suspect]
     Indication: CORONARY ARTERY SURGERY
     Dosage: 4 MG, QD, ORAL
     Route: 048
     Dates: start: 20041124
  6. WARFARIN [Suspect]
     Indication: POSTOPERATIVE CARE
     Dosage: 4 MG, QD, ORAL
     Route: 048
     Dates: start: 20041124
  7. ALLOPURINOL [Suspect]
     Indication: HYPERURICAEMIA
     Dosage: 100 MG, QD, ORAL
     Route: 048
     Dates: start: 20041210, end: 20050122

REACTIONS (4)
  - HEPATIC FUNCTION ABNORMAL [None]
  - LIVER DISORDER [None]
  - RASH GENERALISED [None]
  - THROMBOCYTOPENIA [None]
